FAERS Safety Report 14858525 (Version 3)
Quarter: 2018Q2

REPORT INFORMATION
  Report Type: Report from Study
  Country: None (occurrence: KR)
  Receive Date: 20180508
  Receipt Date: 20180529
  Transmission Date: 20180711
  Serious: Yes (Hospitalization)
  Sender: FDA-Public Use
  Company Number: KR-ABBVIE-18S-090-2343754-00

PATIENT
  Age: 49 Year
  Sex: Male
  Weight: 83 kg

DRUGS (4)
  1. KANARB [Concomitant]
     Indication: HYPERTENSION
     Route: 048
     Dates: start: 201802, end: 20180503
  2. VIEKIRAX [Suspect]
     Active Substance: OMBITASVIR\PARITAPREVIR\RITONAVIR
     Indication: HEPATITIS C
     Route: 048
     Dates: start: 20180427, end: 20180430
  3. EXVIERA [Suspect]
     Active Substance: DASABUVIR
     Indication: HEPATITIS C
     Route: 048
     Dates: start: 20180427, end: 20180430
  4. COZAAR [Concomitant]
     Active Substance: LOSARTAN POTASSIUM
     Indication: HYPERTENSION
     Route: 048
     Dates: start: 20180504

REACTIONS (3)
  - Headache [Recovering/Resolving]
  - Paraesthesia [Recovered/Resolved]
  - Liver function test increased [Recovering/Resolving]

NARRATIVE: CASE EVENT DATE: 20180430
